FAERS Safety Report 15774646 (Version 1)
Quarter: 2018Q4

REPORT INFORMATION
  Report Type: Report from Study
  Country: DE (occurrence: DE)
  Receive Date: 20181230
  Receipt Date: 20181230
  Transmission Date: 20190205
  Serious: Yes (Hospitalization, Other)
  Sender: FDA-Public Use
  Company Number: DE-BAXTER-2018BAX029687

PATIENT
  Age: 88 Year
  Sex: Male
  Weight: 64 kg

DRUGS (31)
  1. DOXORUBICIN [Suspect]
     Active Substance: DOXORUBICIN
     Dosage: 43 MG, (INFUSION RATE 2.0 ML/MIN FROM 12:40 TO 13:45)
     Route: 041
     Dates: start: 20181123, end: 20181123
  2. RIXIMYO [Suspect]
     Active Substance: RITUXIMAB
     Indication: DIFFUSE LARGE B-CELL LYMPHOMA
     Dosage: 644 MG, UNK
     Route: 041
     Dates: start: 20181017, end: 20181017
  3. RIXIMYO [Suspect]
     Active Substance: RITUXIMAB
     Indication: PRODUCT USED FOR UNKNOWN INDICATION
     Dosage: 644 MG, UNK
     Route: 041
     Dates: start: 20181101, end: 20181101
  4. ONDANSETRON [Concomitant]
     Active Substance: ONDANSETRON
     Indication: PROPHYLAXIS
     Dosage: UNK
     Route: 042
     Dates: start: 20181017
  5. METAMIZOLE [Concomitant]
     Active Substance: METAMIZOLE
     Indication: PRODUCT USED FOR UNKNOWN INDICATION
     Dosage: UNK
     Route: 048
     Dates: start: 20181022
  6. VINCRISTINE [Suspect]
     Active Substance: VINCRISTINE
     Indication: DIFFUSE LARGE B-CELL LYMPHOMA
     Dosage: 1 MG, (INFUSION RATE 6.6 ML/MIN)
     Route: 041
     Dates: start: 20181018, end: 20181018
  7. METFORMIN [Concomitant]
     Active Substance: METFORMIN HYDROCHLORIDE
     Indication: DIABETES MELLITUS
     Dosage: UNK
     Route: 048
  8. HCT [Concomitant]
     Active Substance: HYDROCHLOROTHIAZIDE
     Indication: HYPERTENSION
     Route: 048
  9. INSULIN [Concomitant]
     Active Substance: INSULIN NOS
     Indication: DIABETES MELLITUS
     Dosage: UNK
     Route: 058
  10. DOXORUBICIN [Suspect]
     Active Substance: DOXORUBICIN
     Indication: DIFFUSE LARGE B-CELL LYMPHOMA
     Dosage: 43 MG, (INFUSION RATE 2.0 ML/MIN)
     Route: 041
     Dates: start: 20181018, end: 20181018
  11. MESNA. [Concomitant]
     Active Substance: MESNA
     Indication: PROPHYLAXIS
     Dosage: UNK
     Route: 042
     Dates: start: 20181017
  12. CLEMASTINE [Concomitant]
     Active Substance: CLEMASTINE
     Indication: PROPHYLAXIS
     Dosage: UNK
     Route: 042
     Dates: start: 20181017
  13. VITAMIN D3 [Concomitant]
     Active Substance: CHOLECALCIFEROL
     Indication: PROSTATE CANCER
     Dosage: UNK
     Route: 048
     Dates: start: 20181022
  14. RANITIDIN [Concomitant]
     Active Substance: RANITIDINE HYDROCHLORIDE
     Indication: PROPHYLAXIS
     Dosage: UNK
     Route: 042
     Dates: start: 20181017
  15. ENDOXAN 1G [Suspect]
     Active Substance: CYCLOPHOSPHAMIDE
     Indication: DIFFUSE LARGE B-CELL LYMPHOMA
     Dosage: 690 MG, (INFUSION RATE 16.6 ML/MIN)
     Route: 041
     Dates: start: 20181018, end: 20181018
  16. ENDOXAN 1G [Suspect]
     Active Substance: CYCLOPHOSPHAMIDE
     Dosage: 690 MG, UNK
     Route: 041
     Dates: start: 20181123, end: 20181123
  17. VINCRISTINE [Suspect]
     Active Substance: VINCRISTINE
     Dosage: 1 MG, (INFUSION RATE 6.6 ML/MIN FROM 12:25 TO 12:40)
     Route: 041
     Dates: start: 20181123, end: 20181123
  18. RIXIMYO [Suspect]
     Active Substance: RITUXIMAB
     Dosage: 644 MG, UNK
     Route: 041
     Dates: start: 20181122
  19. GLIBENCLAMID [Concomitant]
     Active Substance: GLYBURIDE
     Indication: DIABETES MELLITUS
     Dosage: UNK
     Route: 048
  20. DOXORUBICIN [Suspect]
     Active Substance: DOXORUBICIN
     Indication: PRODUCT USED FOR UNKNOWN INDICATION
     Dosage: 43 MG, (INFUSION RATE 2.0 ML/MIN FROM 12:40 TO 13:45)
     Route: 041
     Dates: start: 20181102, end: 20181102
  21. PREDNISONE. [Suspect]
     Active Substance: PREDNISONE
     Indication: PRODUCT USED FOR UNKNOWN INDICATION
     Dosage: 500 MG, UNK
     Route: 048
     Dates: start: 20181116, end: 20181120
  22. METOCLOPRAMID [Concomitant]
     Active Substance: METOCLOPRAMIDE
     Indication: PROPHYLAXIS
     Dosage: UNK
     Route: 048
     Dates: start: 20181019
  23. BICALUTAMID [Concomitant]
     Active Substance: BICALUTAMIDE
     Indication: PROSTATE CANCER
     Dosage: UNK
     Route: 048
     Dates: start: 20181022
  24. ENDOXAN 1G [Suspect]
     Active Substance: CYCLOPHOSPHAMIDE
     Indication: PRODUCT USED FOR UNKNOWN INDICATION
     Dosage: 690 MG, UNK
     Route: 041
     Dates: start: 20181102, end: 20181102
  25. VINCRISTINE [Suspect]
     Active Substance: VINCRISTINE
     Indication: PRODUCT USED FOR UNKNOWN INDICATION
     Dosage: 1 MG, (INFUSION RATE 6.6 ML/MIN FROM 12:25 TO 12:40)
     Route: 041
     Dates: start: 20181102, end: 20181102
  26. PREDNISONE. [Suspect]
     Active Substance: PREDNISONE
     Indication: DIFFUSE LARGE B-CELL LYMPHOMA
     Dosage: 500 MG, UNK
     Route: 048
     Dates: start: 20181101, end: 20181105
  27. PREDNISONE. [Suspect]
     Active Substance: PREDNISONE
     Dosage: 500 MG, UNK
     Route: 048
     Dates: start: 20181122, end: 20181126
  28. FELOCOR [Concomitant]
     Indication: HYPERTENSION
     Dosage: UNK
     Route: 048
  29. PREDNISONE. [Suspect]
     Active Substance: PREDNISONE
     Dosage: 500 MG, UNK
     Route: 048
     Dates: start: 20181017, end: 20181021
  30. ALLOPURINOL. [Concomitant]
     Active Substance: ALLOPURINOL
     Indication: HYPERURICAEMIA
     Dosage: UNK
     Route: 048
  31. CAPTOPRIL. [Concomitant]
     Active Substance: CAPTOPRIL
     Indication: HYPERTENSION
     Dosage: UNK
     Route: 048

REACTIONS (11)
  - Duodenal ulcer [Not Recovered/Not Resolved]
  - White blood cell count decreased [Recovered/Resolved]
  - Urinary tract infection bacterial [Not Recovered/Not Resolved]
  - Cardiac failure [Recovered/Resolved]
  - Neutrophil count decreased [Not Recovered/Not Resolved]
  - Platelet count decreased [Recovered/Resolved]
  - Platelet count decreased [Not Recovered/Not Resolved]
  - Oesophagitis [Not Recovered/Not Resolved]
  - Gastritis [Not Recovered/Not Resolved]
  - Atrial fibrillation [Not Recovered/Not Resolved]
  - Anaemia [Recovered/Resolved]

NARRATIVE: CASE EVENT DATE: 20181106
